FAERS Safety Report 7862953-9 (Version None)
Quarter: 2011Q4

REPORT INFORMATION
  Report Type: 
  Country: None (occurrence: None)
  Receive Date: 20111027
  Receipt Date: 20101104
  Transmission Date: 20120403
  Serious: No
  Sender: FDA-Public Use
  Company Number: US-AMGEN-USASP2010000925

PATIENT
  Age: 44 Year
  Sex: Female

DRUGS (1)
  1. ENBREL [Suspect]
     Indication: PSORIASIS
     Dosage: 50 MG, 2 TIMES/WK
     Route: 030
     Dates: start: 20101005

REACTIONS (7)
  - INJECTION SITE PAIN [None]
  - INJECTION SITE REACTION [None]
  - DRUG DISPENSING ERROR [None]
  - INJECTION SITE WARMTH [None]
  - INJECTION SITE MASS [None]
  - INJECTION SITE ERYTHEMA [None]
  - INJECTION SITE SWELLING [None]
